FAERS Safety Report 5045334-5 (Version None)
Quarter: 2006Q3

REPORT INFORMATION
  Report Type: 
  Country: None (occurrence: None)
  Receive Date: 20060707
  Receipt Date: 20051129
  Transmission Date: 20061208
  Serious: No
  Sender: FDA-Public Use
  Company Number: US-GLAXOSMITHKLINE-A0583869A

PATIENT
  Age: 71 Year
  Sex: Female

DRUGS (2)
  1. LOTRONEX [Suspect]
     Indication: IRRITABLE BOWEL SYNDROME
     Dosage: 1MG THREE TIMES PER DAY
     Route: 048
  2. OPIUM [Concomitant]

REACTIONS (1)
  - DRUG INEFFECTIVE [None]
